FAERS Safety Report 5164507-4 (Version None)
Quarter: 2006Q4

REPORT INFORMATION
  Report Type: 
  Country: None (occurrence: None)
  Receive Date: 20061205
  Receipt Date: 20061128
  Transmission Date: 20070319
  Serious: Yes (Hospitalization)
  Sender: FDA-Public Use
  Company Number: CA-JNJFOC-20060902312

PATIENT
  Sex: Male
  Weight: 93.44 kg

DRUGS (7)
  1. LEVAQUIN [Suspect]
     Indication: DRUG USE FOR UNKNOWN INDICATION
     Route: 048
     Dates: start: 20060831, end: 20060904
  2. METFORMIN HCL [Concomitant]
     Indication: DIABETES MELLITUS
     Route: 065
  3. LISINOPRIL [Concomitant]
     Indication: HYPERTENSION
     Route: 065
  4. HYDROCHLOROTHIAZIDE [Concomitant]
     Indication: HYPERTENSION
     Route: 065
  5. SIMVASTATIN [Concomitant]
     Indication: BLOOD CHOLESTEROL DECREASED
     Route: 065
  6. SERAX [Concomitant]
     Indication: ANXIETY
     Route: 065
  7. OXAZEPAM [Concomitant]

REACTIONS (2)
  - FACIAL PALSY [None]
  - GUILLAIN-BARRE SYNDROME [None]
